FAERS Safety Report 17822908 (Version 2)
Quarter: 2020Q2

REPORT INFORMATION
  Report Type: Spontaneous
  Country: CN (occurrence: CN)
  Receive Date: 20200526
  Receipt Date: 20200611
  Transmission Date: 20200714
  Serious: Yes (Hospitalization, Other)
  Sender: FDA-Public Use
  Company Number: CN-ALKEM LABORATORIES LIMITED-CN-ALKEM-2020-02129

PATIENT
  Age: 28 Year
  Sex: Male
  Weight: 90 kg

DRUGS (35)
  1. CASPOFUNGIN [Suspect]
     Active Substance: CASPOFUNGIN
     Dosage: 50 MILLIGRAM, OD
     Route: 041
     Dates: start: 201707
  2. TIGECYCLINE. [Suspect]
     Active Substance: TIGECYCLINE
     Dosage: 50 MILLIGRAM, BID
     Route: 065
     Dates: start: 201707, end: 20170724
  3. VANCOMYCIN [Suspect]
     Active Substance: VANCOMYCIN
     Indication: KLEBSIELLA INFECTION
     Dosage: 0.5 GRAM, QID
     Route: 041
     Dates: start: 20170613, end: 20170618
  4. HUMAN FIBRINOGEN [Concomitant]
     Active Substance: FIBRINOGEN HUMAN
     Indication: PRODUCT USED FOR UNKNOWN INDICATION
     Dosage: UNK
     Route: 065
  5. OMEPRAZOLE. [Concomitant]
     Active Substance: OMEPRAZOLE
     Indication: PRODUCT USED FOR UNKNOWN INDICATION
     Dosage: 40 MILLIGRAM, BID
     Route: 042
     Dates: start: 20170613
  6. FLUCONAZOLE. [Suspect]
     Active Substance: FLUCONAZOLE
     Dosage: 400 MILLIGRAM, QD
     Route: 041
     Dates: start: 201707, end: 20170709
  7. CASPOFUNGIN [Suspect]
     Active Substance: CASPOFUNGIN
     Indication: CANDIDA INFECTION
     Dosage: 70 MILLIGRAM
     Route: 041
     Dates: start: 20170709
  8. SODIUM HYDROGEN CARBONATE [Concomitant]
     Active Substance: SODIUM BICARBONATE
     Indication: STENOTROPHOMONAS INFECTION
     Dosage: 100 MILLIGRAM, TID
     Route: 065
     Dates: start: 20170630
  9. ADEMETIONINE 1,4 BUTANEDISULFONATE [Concomitant]
     Indication: PRODUCT USED FOR UNKNOWN INDICATION
     Dosage: 1 GRAM, OD
     Route: 042
     Dates: start: 20170614
  10. ASCORBIC ACID. [Concomitant]
     Active Substance: ASCORBIC ACID
     Indication: PRODUCT USED FOR UNKNOWN INDICATION
     Dosage: 8 GRAM, OD
     Route: 065
     Dates: start: 20170613
  11. HUMAN NORMAL IMMUNOGLOBULIN [Concomitant]
     Active Substance: HUMAN IMMUNOGLOBULIN G
     Dosage: 10 GRAM, OD
     Route: 041
     Dates: start: 20170615
  12. KUHUANG [Concomitant]
     Indication: PRODUCT USED FOR UNKNOWN INDICATION
     Dosage: 30 MILLILITER, OD
     Route: 041
     Dates: start: 20170614
  13. VANCOMYCIN [Suspect]
     Active Substance: VANCOMYCIN
     Dosage: 2.5 GRAM
     Route: 041
     Dates: start: 20170624, end: 20170630
  14. VANCOMYCIN [Suspect]
     Active Substance: VANCOMYCIN
     Dosage: 2.5 GRAM
     Route: 041
     Dates: start: 20170712
  15. GLUTATHIONE (REDUCED) [Concomitant]
     Indication: PRODUCT USED FOR UNKNOWN INDICATION
     Dosage: 1800 MILLIGRAM, OD
     Route: 041
     Dates: start: 20170613
  16. METADOXINE [Concomitant]
     Active Substance: METADOXINE
     Indication: PRODUCT USED FOR UNKNOWN INDICATION
     Dosage: 500 MILLIGRAM, BID
     Route: 065
     Dates: start: 20170614
  17. FLUCONAZOLE. [Suspect]
     Active Substance: FLUCONAZOLE
     Indication: CANDIDA INFECTION
     Dosage: 800 MILLIGRAM
     Route: 041
     Dates: start: 20170701
  18. TIGECYCLINE. [Suspect]
     Active Substance: TIGECYCLINE
     Indication: KLEBSIELLA INFECTION
     Dosage: 50 MILLIGRAM, BID
     Route: 065
     Dates: start: 20170725
  19. DIAMMONIUM GLYCYRRHIZINATE [Concomitant]
     Active Substance: HERBALS\DIAMMONIUM GLYCYRRHIZINATE
     Indication: PRODUCT USED FOR UNKNOWN INDICATION
     Dosage: 150 MILLIGRAM, OD
     Route: 041
     Dates: start: 20170613
  20. TIGECYCLINE. [Suspect]
     Active Substance: TIGECYCLINE
     Dosage: 100 MILLIGRAM
     Route: 065
     Dates: start: 20170704
  21. MEROPENEM. [Concomitant]
     Active Substance: MEROPENEM
     Indication: PRODUCT USED FOR UNKNOWN INDICATION
     Dosage: 2 GRAM, TID
     Route: 065
  22. METRONIDAZOLE. [Concomitant]
     Active Substance: METRONIDAZOLE
     Indication: DIARRHOEA
     Dosage: 400 MILLIGRAM, TID
     Route: 065
     Dates: start: 20170630, end: 20170712
  23. POLYENEPHOSPHATIDYL CHOLINE [Concomitant]
     Indication: PRODUCT USED FOR UNKNOWN INDICATION
     Dosage: 695.5 MILLIGRAM, OD
     Route: 041
     Dates: start: 20170614
  24. ULINASTATIN [Concomitant]
     Active Substance: ULINASTATIN
     Indication: PRODUCT USED FOR UNKNOWN INDICATION
     Dosage: 300000 INTERNATIONAL UNIT, OD
     Route: 065
     Dates: start: 20170613
  25. LINEZOLID. [Suspect]
     Active Substance: LINEZOLID
     Indication: STAPHYLOCOCCAL INFECTION
     Dosage: 600 MILLIGRAM, BID
     Route: 041
     Dates: start: 20170630, end: 20170704
  26. VANCOMYCIN [Suspect]
     Active Substance: VANCOMYCIN
     Dosage: 1 GRAM, BID
     Route: 041
     Dates: start: 20170712
  27. AMIKACIN. [Concomitant]
     Active Substance: AMIKACIN
     Indication: KLEBSIELLA INFECTION
     Dosage: 1200 MILLIGRAM, QD
     Route: 041
     Dates: start: 20170630, end: 20170707
  28. ORNITHINE ASPARTATE [Concomitant]
     Active Substance: ORNITHINE ASPARTATE
     Indication: PRODUCT USED FOR UNKNOWN INDICATION
     Dosage: 15 GRAM, BID
     Route: 041
     Dates: start: 20170615
  29. URSODEOXYCHOLIC ACID [Concomitant]
     Active Substance: URSODIOL
     Indication: PRODUCT USED FOR UNKNOWN INDICATION
     Dosage: 2000 MILLIGRAM, BID
     Route: 065
     Dates: start: 20170613
  30. SULFAMETHOXAZOLE [Suspect]
     Active Substance: SULFAMETHOXAZOLE
     Indication: STENOTROPHOMONAS INFECTION
     Dosage: 960 MILLIGRAM, TID
     Route: 065
     Dates: start: 20170630, end: 20170712
  31. VANCOMYCIN [Suspect]
     Active Substance: VANCOMYCIN
     Dosage: 2 GRAM
     Route: 041
     Dates: start: 20170619, end: 20170621
  32. CILASTATIN SODIUM, IMIPENEM [Concomitant]
     Active Substance: CILASTATIN SODIUM\IMIPENEM
     Indication: KLEBSIELLA INFECTION
     Dosage: 1 GRAM, TID
     Route: 041
     Dates: start: 20170613, end: 20170703
  33. COENZYME COMPLEX [Concomitant]
     Active Substance: UNSPECIFIED INGREDIENT
     Indication: KLEBSIELLA INFECTION
     Dosage: 0.4 MILLIGRAM, OD
     Route: 041
     Dates: start: 20170614
  34. SILYMARIN [Concomitant]
     Active Substance: DIETARY SUPPLEMENT\HERBALS\MILK THISTLE
     Indication: PRODUCT USED FOR UNKNOWN INDICATION
     Dosage: 140 MILLIGRAM, TID
     Route: 065
     Dates: start: 20170615
  35. SOMATOSTATIN [Concomitant]
     Active Substance: SOMATOSTATIN
     Indication: PRODUCT USED FOR UNKNOWN INDICATION
     Dosage: 6 MILLIGRAM, OD
     Route: 065
     Dates: start: 20170613

REACTIONS (3)
  - Hepatic failure [Unknown]
  - Toxicity to various agents [Unknown]
  - Lactic acidosis [Recovering/Resolving]

NARRATIVE: CASE EVENT DATE: 20170704
